FAERS Safety Report 21370185 (Version 1)
Quarter: 2022Q3

REPORT INFORMATION
  Report Type: Spontaneous
  Country: US (occurrence: US)
  Receive Date: 20220923
  Receipt Date: 20220923
  Transmission Date: 20221027
  Serious: No
  Sender: FDA-Public Use
  Company Number: US-BRISTOL-MYERS SQUIBB COMPANY-2022-110979

PATIENT
  Age: 69 Year
  Sex: Female
  Weight: 55.79 kg

DRUGS (1)
  1. REVLIMID [Suspect]
     Active Substance: LENALIDOMIDE
     Indication: Plasma cell myeloma
     Dosage: FREQUENCY-DAYS 1-21, THEN 7 DAYS OFF?TOOK 5 CAPSULES
     Route: 048

REACTIONS (2)
  - Blood creatinine increased [Unknown]
  - Renal disorder [Unknown]
